FAERS Safety Report 7634157-6 (Version None)
Quarter: 2011Q3

REPORT INFORMATION
  Report Type: 
  Country: None (occurrence: None)
  Receive Date: 20110725
  Receipt Date: 20110721
  Transmission Date: 20111222
  Serious: No
  Sender: FDA-Public Use
  Company Number: US-PFIZER INC-2011166221

PATIENT
  Sex: Female
  Weight: 63.5 kg

DRUGS (5)
  1. PRISTIQ [Suspect]
     Indication: MANIA
     Dosage: 50 MG, 1X/DAY
     Route: 048
     Dates: start: 20110501
  2. GLIPIZIDE [Concomitant]
     Indication: BLOOD GLUCOSE INCREASED
     Dosage: UNK
  3. EVISTA [Concomitant]
     Indication: OSTEOPOROSIS
     Dosage: UNK
  4. PRISTIQ [Suspect]
     Indication: PANIC ATTACK
  5. PRISTIQ [Suspect]
     Indication: ANXIETY

REACTIONS (1)
  - MEDICATION RESIDUE [None]
